FAERS Safety Report 9619471 (Version 4)
Quarter: 2013Q4

REPORT INFORMATION
  Report Type: Spontaneous
  Country: JP (occurrence: JP)
  Receive Date: 20131014
  Receipt Date: 20131104
  Transmission Date: 20140711
  Serious: Yes (Other)
  Sender: FDA-Public Use
  Company Number: JP-AMGEN-JPNSP2013051907

PATIENT
  Age: 74 Year
  Sex: Female
  Weight: 48 kg

DRUGS (17)
  1. RANMARK [Suspect]
     Indication: BREAST CANCER
     Dosage: 120 MG, UNK
     Route: 058
     Dates: start: 20130304, end: 20130328
  2. OXYCONTIN [Suspect]
     Indication: PAIN
     Dosage: AFTER BREAKFAST AND DINNER
     Route: 048
  3. ABRAXANE /01116001/ [Suspect]
     Indication: PRODUCT USED FOR UNKNOWN INDICATION
     Dosage: UNKNOWN
     Route: 065
  4. PROMAC                             /01312301/ [Concomitant]
     Indication: PROPHYLAXIS AGAINST GASTROINTESTINAL ULCER
     Dosage: AFTER BREAKFAST, LUNCH AND DINNER
     Route: 048
  5. MUCOSTA [Concomitant]
     Indication: PROPHYLAXIS AGAINST GASTROINTESTINAL ULCER
     Dosage: AFTER BREAKFAST, LUNCH AND DINNER
     Route: 048
  6. PRORENAL [Concomitant]
     Indication: BREAST CANCER
     Dosage: AFTER BREAKFAST, LUNCH AND DINNER
     Route: 048
  7. MAGMITT [Concomitant]
     Indication: CONSTIPATION PROPHYLAXIS
     Dosage: AFTER BREAKFAST, LUNCH AND DINNER
     Route: 048
  8. LOXONIN [Concomitant]
     Indication: BREAST CANCER
     Dosage: AFTER BREAKFAST AND DINNER
     Route: 048
  9. FERROMIA                           /00023516/ [Concomitant]
     Indication: ANAEMIA PROPHYLAXIS
     Dosage: AFTER BREAKFAST AND DINNER
     Route: 048
  10. IRON [Concomitant]
     Indication: ANAEMIA PROPHYLAXIS
     Dosage: AFTER BREAKFAST AND DINNER
     Route: 048
  11. NEUROTROPIN                        /06251301/ [Concomitant]
     Indication: BREAST CANCER
     Dosage: AFTER BREAKFAST AND DINNER
     Route: 048
  12. GOSHAJINKIGAN [Concomitant]
     Indication: PROPHYLAXIS
     Dosage: AFTER BREAKFAST, LUNCH AND DINNER
     Route: 048
  13. OXINORM                            /00045603/ [Concomitant]
     Indication: PAIN
     Dosage: TIME FOR PAIN
     Route: 048
  14. CALCICOL [Concomitant]
     Indication: HYPOCALCAEMIA
     Dosage: (MORNING 2G-DAYTIME 1G-EVENING 2G) AFTER BREAKFAST, LUNCH AND DINNER
     Route: 048
  15. ONEALFA [Concomitant]
     Indication: HYPOCALCAEMIA
     Dosage: AFTER BREAKFAST
     Route: 048
  16. FASLODEX                           /01285001/ [Concomitant]
     Indication: BREAST CANCER
     Dosage: UNK
     Route: 065
     Dates: start: 20120709
  17. LASIX                              /00032601/ [Concomitant]
     Indication: OEDEMA
     Dosage: BREAKFAST
     Route: 048

REACTIONS (2)
  - Anaemia [Recovered/Resolved]
  - Hypocalcaemia [Recovering/Resolving]
